FAERS Safety Report 8237215-0 (Version None)
Quarter: 2012Q1

REPORT INFORMATION
  Report Type: 
  Country: None (occurrence: None)
  Receive Date: 20120327
  Receipt Date: 20120327
  Transmission Date: 20120608
  Serious: Yes (Hospitalization)
  Sender: FDA-Public Use
  Company Number: None

PATIENT
  Sex: Male
  Weight: 40.3 kg

DRUGS (5)
  1. PROPOFOL [Concomitant]
  2. METHOTREXATE [Concomitant]
  3. VINCRISTINE [Concomitant]
  4. ACETAMINOPHEN [Concomitant]
  5. ONCASPAR [Suspect]
     Indication: ACUTE LYMPHOCYTIC LEUKAEMIA
     Dosage: 3.450 UNITS
     Route: 030
     Dates: start: 20110909, end: 20110909

REACTIONS (1)
  - PANCREATITIS [None]
